FAERS Safety Report 8906110 (Version 1)
Quarter: 2012Q4

REPORT INFORMATION
  Report Type: Spontaneous
  Country: GB (occurrence: None)
  Receive Date: 20121102
  Receipt Date: 20121102
  Transmission Date: 20130627
  Serious: Yes (Other)
  Sender: FDA-Public Use
  Company Number: 2012033748

PATIENT
  Age: 7 Year
  Sex: Male

DRUGS (3)
  1. IMMUNOGLOBULIN INTRAVENOUS HUMAN [Suspect]
     Dosage: single infusion
     Route: 042
  2. SODIUM VALPROATE (VALPROATE SODIUM) [Concomitant]
  3. CARBAMAZEPINE (CARBAMAZEPINE) INDICATION FOR USE WAS EPILEPSY [Concomitant]

REACTIONS (5)
  - Oral mucosal blistering [None]
  - Condition aggravated [None]
  - Drug ineffective for unapproved indication [None]
  - Blister [None]
  - Face oedema [None]
